FAERS Safety Report 7504260-X (Version None)
Quarter: 2011Q2

REPORT INFORMATION
  Report Type: 
  Country: None (occurrence: None)
  Receive Date: 20110525
  Receipt Date: 20110517
  Transmission Date: 20111010
  Serious: Yes (Other)
  Sender: FDA-Public Use
  Company Number: US-ASTRAZENECA-2011SE30551

PATIENT
  Age: 49 Year
  Sex: Male

DRUGS (2)
  1. BLOOD PRESSURE MEDICINE [Concomitant]
  2. NEXIUM [Suspect]
     Route: 048

REACTIONS (1)
  - DEAFNESS UNILATERAL [None]
